FAERS Safety Report 14354687 (Version 2)
Quarter: 2018Q2

REPORT INFORMATION
  Report Type: Spontaneous
  Country: FR (occurrence: FR)
  Receive Date: 20180105
  Receipt Date: 20180601
  Transmission Date: 20180711
  Serious: Yes (Other)
  Sender: FDA-Public Use
  Company Number: FR-MERCK KGAA-2039429

PATIENT
  Age: 51 Year
  Sex: Female
  Weight: 62 kg

DRUGS (3)
  1. NOVOTHYROX [Suspect]
     Active Substance: LEVOTHYROXINE SODIUM
     Indication: BASEDOW^S DISEASE
     Route: 048
     Dates: start: 20170701, end: 20170923
  2. AVLOCARDYL (PROPRANOLOL) [Concomitant]
     Active Substance: PROPRANOLOL HYDROCHLORIDE
  3. CETIRIZINE(CETIRIZINE) [Concomitant]
     Dates: start: 2008

REACTIONS (26)
  - Headache [Recovered/Resolved]
  - Diarrhoea [Recovered/Resolved]
  - Constipation [Recovered/Resolved]
  - Urine odour abnormal [Recovered/Resolved]
  - Vertigo [Recovered/Resolved]
  - Oropharyngeal pain [Recovered/Resolved]
  - Libido disorder [Not Recovered/Not Resolved]
  - Myalgia [Recovered/Resolved]
  - Constipation [Not Recovered/Not Resolved]
  - Blood thyroid stimulating hormone normal [Recovered/Resolved]
  - Chest pain [Recovered/Resolved]
  - Menorrhagia [Recovered/Resolved]
  - Hypotension [Recovered/Resolved]
  - Aphonia [Not Recovered/Not Resolved]
  - Abdominal pain upper [Recovered/Resolved]
  - Hot flush [Not Recovered/Not Resolved]
  - Nausea [Not Recovered/Not Resolved]
  - Fatigue [Not Recovered/Not Resolved]
  - Urinary tract infection [Recovered/Resolved]
  - Toothache [Recovered/Resolved]
  - Somnolence [Recovered/Resolved]
  - Arthralgia [Not Recovered/Not Resolved]
  - Asthenia [Not Recovered/Not Resolved]
  - Insomnia [Not Recovered/Not Resolved]
  - Memory impairment [Not Recovered/Not Resolved]
  - Alopecia [Recovered/Resolved]

NARRATIVE: CASE EVENT DATE: 20170701
